FAERS Safety Report 9006298 (Version 1)
Quarter: 2013Q1

REPORT INFORMATION
  Report Type: Spontaneous
  Country: US (occurrence: US)
  Receive Date: 20130110
  Receipt Date: 20130110
  Transmission Date: 20140127
  Serious: Yes (Hospitalization)
  Sender: FDA-Public Use
  Company Number: US-PAR PHARMACEUTICAL, INC-2013SCPR004818

PATIENT
  Sex: 0

DRUGS (23)
  1. MORPHINE SULFATE [Suspect]
     Indication: PAIN
     Dosage: 2 MG, SINGLE
  2. MORPHINE SULFATE [Interacting]
     Indication: HEADACHE
     Dosage: 75 MG TID
     Route: 048
  3. MORPHINE SULFATE [Interacting]
     Indication: DRUG WITHDRAWAL MAINTENANCE THERAPY
     Dosage: 225 MG, DAILY IN DIVIDED DOSE
     Route: 048
  4. RIFAMPIN [Interacting]
     Indication: ENDOCARDITIS
     Dosage: 600 MG, / DAY
     Route: 048
  5. HEROIN [Suspect]
     Indication: PRODUCT USED FOR UNKNOWN INDICATION
     Dosage: 10-12 BAGS / DAY
  6. OXYCODONE WITH APAP [Concomitant]
     Indication: PAIN
     Dosage: 1 DF, QID
     Route: 048
  7. OXYCODONE WITH APAP [Concomitant]
     Indication: PAIN
     Dosage: 1 DF, EVERY 4 HRS, PRN
     Route: 048
  8. OXYCODONE WITH APAP [Concomitant]
     Dosage: Q4H PRN
     Route: 048
  9. OXACILLIN [Concomitant]
     Indication: ENDOCARDITIS
     Dosage: 2 G, INFUSE OVER 30 MIN Q4H
     Route: 042
  10. NYSTATIN [Concomitant]
     Indication: ENDOCARDITIS
     Dosage: 500,000 UNITS/5 ML, TID
     Route: 048
  11. GENTAMYCIN                         /00047101/ [Concomitant]
     Indication: ENDOCARDITIS
     Dosage: 80 MG, SINGLE
  12. GENTAMYCIN                         /00047101/ [Concomitant]
     Dosage: 100 MG, INFUSE OVER 30 MIN Q8H
  13. WARFARIN [Concomitant]
     Indication: PRODUCT USED FOR UNKNOWN INDICATION
     Dosage: 7.5 MG, / DAY
     Route: 048
  14. LACTOBACILLUS [Concomitant]
     Indication: PRODUCT USED FOR UNKNOWN INDICATION
     Dosage: 1 DF, BID
     Route: 048
  15. OMEPRAZOLE [Concomitant]
     Indication: PRODUCT USED FOR UNKNOWN INDICATION
     Dosage: 40 MG, BID
     Route: 048
  16. ENOXAPARIN [Concomitant]
     Indication: PRODUCT USED FOR UNKNOWN INDICATION
     Dosage: 80 MG, PER 0.8 ML, BID
     Route: 058
  17. CLONIDINE [Concomitant]
     Indication: HYPERTENSION
     Dosage: 0.2 MG QAM AND 0.1 MG QPM
     Route: 048
  18. CLONIDINE [Concomitant]
     Indication: WITHDRAWAL SYNDROME
  19. FENTANYL [Concomitant]
     Indication: PAIN
     Dosage: 25 MCG, /HR
     Route: 062
  20. VANCOMYCIN [Concomitant]
     Indication: ENDOCARDITIS
     Dosage: 1.5 G, SINGLE
  21. OXYCODONE [Concomitant]
     Indication: PAIN
     Dosage: 10 MG, Q4H PRN
     Route: 048
  22. HYDROMORPHONE [Concomitant]
     Indication: PAIN
     Dosage: UNK
  23. HYDROMORPHONE [Concomitant]
     Dosage: 2 MG, EVERY 6 HOURS, PRN

REACTIONS (3)
  - Drug interaction [Unknown]
  - Drug level below therapeutic [Unknown]
  - Drug tolerance [Unknown]
